FAERS Safety Report 7688494-X (Version None)
Quarter: 2011Q3

REPORT INFORMATION
  Report Type: 
  Country: None (occurrence: None)
  Receive Date: 20110817
  Receipt Date: 20110804
  Transmission Date: 20111222
  Serious: Yes (Other)
  Sender: FDA-Public Use
  Company Number: US-CELGENEUS-163-20785-11061259

PATIENT
  Sex: Male

DRUGS (5)
  1. XELODA [Concomitant]
     Route: 065
     Dates: start: 20071201
  2. LOMOTIL [Concomitant]
     Route: 065
     Dates: start: 20110606
  3. OXALIPLATIN [Concomitant]
     Route: 065
  4. THALOMID [Suspect]
     Dosage: 100 MILLIGRAM
     Route: 048
     Dates: start: 20090401
  5. OCTREOTIDE ACETATE [Concomitant]
     Route: 065
     Dates: start: 20071201

REACTIONS (1)
  - RECTAL CANCER [None]
